FAERS Safety Report 9285818 (Version 2)
Quarter: 2013Q2

REPORT INFORMATION
  Report Type: Spontaneous
  Country: BR (occurrence: None)
  Receive Date: 20130507
  Receipt Date: 20130621
  Transmission Date: 20140414
  Serious: Yes (Other)
  Sender: FDA-Public Use
  Company Number: DSU-2013-03176

PATIENT
  Age: 62 Year
  Sex: Male
  Weight: 118 kg

DRUGS (7)
  1. OLMETEC HCT [Suspect]
     Indication: PRODUCT USED FOR UNKNOWN INDICATION
     Route: 048
     Dates: start: 20100917
  2. NORVASC [Suspect]
     Indication: PRODUCT USED FOR UNKNOWN INDICATION
  3. GLIFAGE XR (METFORMIN) (METFORMIN) [Concomitant]
  4. LIPITOR (ATORVASTATIN CALCIUM) (ATORVASTATIN CALCIUM) [Concomitant]
  5. NAPRIX (RAMIPRIL) (RAMIPRIL) [Concomitant]
  6. NATRILIX SR (INDAPAMIDE) (INDAPAMIDE) [Concomitant]
  7. ZYLORIC (ALLOPURINOL) (ALLOPURINOL) [Concomitant]

REACTIONS (2)
  - Thrombosis [None]
  - Eye disorder [None]
